FAERS Safety Report 25169370 (Version 3)
Quarter: 2025Q3

REPORT INFORMATION
  Report Type: Spontaneous
  Country: JP (occurrence: JP)
  Receive Date: 20250407
  Receipt Date: 20250809
  Transmission Date: 20251021
  Serious: Yes (Other)
  Sender: ALEXION PHARMACEUTICALS
  Company Number: JP-ASTRAZENECA-250031690_030110_P_1

PATIENT
  Age: 6 Decade
  Sex: Female

DRUGS (16)
  1. SYMBICORT [Suspect]
     Active Substance: BUDESONIDE\FORMOTEROL FUMARATE DIHYDRATE
     Indication: Asthma
     Dosage: 4 DOSAGE FORM, BID
  2. SYMBICORT [Suspect]
     Active Substance: BUDESONIDE\FORMOTEROL FUMARATE DIHYDRATE
     Indication: Asthma
     Dosage: 4 DOSAGE FORM, BID
  3. FASENRA [Suspect]
     Active Substance: BENRALIZUMAB
     Indication: Asthma
  4. FASENRA [Suspect]
     Active Substance: BENRALIZUMAB
     Indication: Asthma
  5. TEZSPIRE [Suspect]
     Active Substance: TEZEPELUMAB-EKKO
     Indication: Asthma
  6. TEZSPIRE [Suspect]
     Active Substance: TEZEPELUMAB-EKKO
  7. MONTELUKAST SODIUM [Suspect]
     Active Substance: MONTELUKAST SODIUM
     Indication: Asthma
     Route: 065
  8. MONTELUKAST SODIUM [Suspect]
     Active Substance: MONTELUKAST SODIUM
     Route: 065
  9. DESLORATADINE [Suspect]
     Active Substance: DESLORATADINE
     Indication: Asthma
     Route: 065
  10. DESLORATADINE [Suspect]
     Active Substance: DESLORATADINE
     Route: 065
  11. CLOTIAZEPAM [Suspect]
     Active Substance: CLOTIAZEPAM
     Indication: Asthma
     Route: 065
  12. CLOTIAZEPAM [Suspect]
     Active Substance: CLOTIAZEPAM
     Route: 065
  13. TEZEPELUMAB [Concomitant]
     Active Substance: TEZEPELUMAB
     Indication: Asthma
  14. FLUTIFORM [Concomitant]
     Active Substance: FLUTIFORM
     Indication: Asthma
     Route: 065
  15. Broncho [Concomitant]
     Indication: Asthma
     Route: 065
  16. Broncho [Concomitant]
     Route: 065

REACTIONS (5)
  - Bronchopulmonary aspergillosis allergic [Unknown]
  - Treatment noncompliance [Unknown]
  - Drug ineffective [Unknown]
  - Asthma [Recovering/Resolving]
  - Arthralgia [Recovering/Resolving]

NARRATIVE: CASE EVENT DATE: 20250101
